FAERS Safety Report 6216951-1 (Version None)
Quarter: 2009Q2

REPORT INFORMATION
  Report Type: 
  Country: None (occurrence: None)
  Receive Date: 20090604
  Receipt Date: 20090528
  Transmission Date: 20091009
  Serious: Yes (Hospitalization)
  Sender: FDA-Public Use
  Company Number: FABR-1000819

PATIENT
  Age: 33 Year
  Sex: Male
  Weight: 69.1 kg

DRUGS (11)
  1. FABRAZYME [Suspect]
     Indication: FABRY'S DISEASE
     Dosage: 1 MG/KG, Q2W, INTRAVENOUS
     Route: 042
     Dates: start: 20070503
  2. CELLCEPT [Suspect]
     Indication: IMMUNE SYSTEM DISORDER
     Dosage: 500 MG, BID, ORAL
     Route: 048
  3. PROGRAF [Suspect]
     Indication: IMMUNE SYSTEM DISORDER
     Dosage: 3.5 MG, QD; 3MG, QD
  4. BACTRIM [Concomitant]
  5. EPOGEN [Concomitant]
  6. ERGOCALCIFEROL [Concomitant]
  7. FAMVIR [Concomitant]
  8. OMEPRAZOLE [Concomitant]
  9. MAGNESIUM OXIDE (MAGNESIUM OXIDE) [Concomitant]
  10. OSCAL (CALCIUM CARBONATE) [Concomitant]
  11. ................ [Concomitant]

REACTIONS (6)
  - ANAEMIA [None]
  - APLASIA PURE RED CELL [None]
  - LEUKOPENIA [None]
  - PARVOVIRUS INFECTION [None]
  - PROTEINURIA [None]
  - RENAL TRANSPLANT [None]
